FAERS Safety Report 6040815-X (Version None)
Quarter: 2009Q1

REPORT INFORMATION
  Report Type: 
  Country: None (occurrence: None)
  Receive Date: 20090116
  Receipt Date: 20080603
  Transmission Date: 20090719
  Serious: No
  Sender: FDA-Public Use
  Company Number: US-BRISTOL-MYERS SQUIBB COMPANY-14214647

PATIENT
  Age: 21 Year
  Sex: Female
  Weight: 91 kg

DRUGS (3)
  1. ABILIFY [Suspect]
     Indication: ABNORMAL BEHAVIOUR
     Dosage: TAKING SINCE 6 YEARS
  2. TOPAMAX [Concomitant]
  3. MAGNESIUM SULFATE [Concomitant]

REACTIONS (3)
  - HEADACHE [None]
  - LACRIMATION INCREASED [None]
  - MYDRIASIS [None]
